FAERS Safety Report 6986319-9 (Version None)
Quarter: 2010Q3

REPORT INFORMATION
  Report Type: 
  Country: None (occurrence: None)
  Receive Date: 20100915
  Receipt Date: 20090623
  Transmission Date: 20110219
  Serious: Yes (Life-Threatening, Hospitalization)
  Sender: FDA-Public Use
  Company Number: US-WYE-H09858009

PATIENT
  Sex: Male
  Weight: 99.88 kg

DRUGS (2)
  1. PRISTIQ [Suspect]
     Indication: ANXIETY
     Route: 048
     Dates: start: 20090605, end: 20090608
  2. CRESTOR [Suspect]
     Indication: HYPERLIPIDAEMIA
     Dates: start: 20081201

REACTIONS (1)
  - BLOOD PRESSURE INCREASED [None]
